FAERS Safety Report 9359788 (Version 1)
Quarter: 2013Q2

REPORT INFORMATION
  Report Type: Spontaneous
  Country: ZA (occurrence: ZA)
  Receive Date: 20130621
  Receipt Date: 20130621
  Transmission Date: 20140414
  Serious: Yes (Hospitalization)
  Sender: FDA-Public Use
  Company Number: ZA-009507513-1306ZAF008652

PATIENT
  Age: 70 Year
  Sex: Female

DRUGS (1)
  1. INVANZ [Suspect]
     Dosage: UNK

REACTIONS (2)
  - Adverse event [Unknown]
  - Pseudomembranous colitis [Unknown]
